FAERS Safety Report 6902965-2 (Version None)
Quarter: 2010Q3

REPORT INFORMATION
  Report Type: 
  Country: None (occurrence: None)
  Receive Date: 20100803
  Receipt Date: 20080827
  Transmission Date: 20110219
  Serious: No
  Sender: FDA-Public Use
  Company Number: US-PFIZER INC-2008071642

PATIENT
  Sex: Female

DRUGS (3)
  1. LYRICA [Suspect]
     Dates: start: 20080701
  2. XYREM [Interacting]
     Indication: NARCOLEPSY
     Route: 048
  3. XYREM [Concomitant]

REACTIONS (3)
  - DRUG INEFFECTIVE [None]
  - DRUG INTERACTION [None]
  - FATIGUE [None]
